FAERS Safety Report 5498556-3 (Version None)
Quarter: 2007Q4

REPORT INFORMATION
  Report Type: 
  Country: None (occurrence: None)
  Receive Date: 20071026
  Receipt Date: 20071016
  Transmission Date: 20080405
  Serious: Yes (Hospitalization, Other)
  Sender: FDA-Public Use
  Company Number: PHBS2007BR17333

PATIENT
  Age: 70 Year
  Sex: Female
  Weight: 70 kg

DRUGS (5)
  1. EXELON [Suspect]
     Indication: DEMENTIA ALZHEIMER'S TYPE
     Dosage: 1.5 MG/DAY
     Route: 048
  2. EXELON [Suspect]
     Dosage: 3 MG/DAY
     Route: 048
  3. METFORMIN [Concomitant]
  4. GLIFAGE [Concomitant]
  5. CONTRAST MEDIA [Suspect]

REACTIONS (5)
  - CAROTID ARTERY DISEASE [None]
  - CONTRAST MEDIA ALLERGY [None]
  - HYPERTENSION [None]
  - NEPHROPATHY TOXIC [None]
  - SOMNOLENCE [None]
